FAERS Safety Report 17497418 (Version 1)
Quarter: 2020Q1

REPORT INFORMATION
  Report Type: Report from Study
  Country: CA (occurrence: CA)
  Receive Date: 20200304
  Receipt Date: 20200304
  Transmission Date: 20200409
  Serious: Yes (Other)
  Sender: FDA-Public Use
  Company Number: CA-NALPROPION PHARMACEUTICALS INC.-2019-009067

PATIENT

DRUGS (16)
  1. CANNABIS SATIVA OIL [Suspect]
     Active Substance: CANNABIS SATIVA SUBSP. INDICA TOP
     Indication: SUPPLEMENTATION THERAPY
     Dosage: UNK
     Route: 065
     Dates: end: 2019
  2. TYLENOL [Concomitant]
     Active Substance: ACETAMINOPHEN
     Indication: PAIN
     Dosage: AS NEEDED
     Route: 048
  3. CANNABIS SATIVA OIL [Suspect]
     Active Substance: CANNABIS SATIVA SUBSP. INDICA TOP
     Dosage: HALF THE DOSE
     Route: 065
     Dates: start: 2019
  4. CONTRAVE [Suspect]
     Active Substance: BUPROPION HYDROCHLORIDE\NALTREXONE HYDROCHLORIDE
     Dosage: 09/SEP/2019 (APPROX) TO 15/SEP/2019 (APPROX), STRENGTH: 90/8 MG
     Route: 048
     Dates: start: 201909, end: 201909
  5. SERTRALINE [Interacting]
     Active Substance: SERTRALINE HYDROCHLORIDE
     Indication: DEPRESSION
     Dosage: AT BEDTIME (100 MG, 1 IN 1 D)
     Route: 065
  6. MAGNESIUM [Concomitant]
     Active Substance: MAGNESIUM
     Indication: SUPPLEMENTATION THERAPY
     Dosage: 1 IN 1 D
     Route: 048
  7. CONTRAVE [Suspect]
     Active Substance: BUPROPION HYDROCHLORIDE\NALTREXONE HYDROCHLORIDE
     Dosage: 02/SEP/2019 (APPROX) TO 08/SEP/2019 (APPROX), STRENGTH: 90/8 MG
     Route: 048
     Dates: start: 201909, end: 201909
  8. CONTRAVE [Suspect]
     Active Substance: BUPROPION HYDROCHLORIDE\NALTREXONE HYDROCHLORIDE
     Indication: WEIGHT CONTROL
     Dosage: 26/AUG/2019 (APPROX) TO 01/SEP/2019 (APPROX), STRENGTH: 90/8 MG
     Route: 048
     Dates: start: 201908, end: 2019
  9. MULTIVITAMIN                       /07504101/ [Concomitant]
     Active Substance: VITAMINS
     Indication: SUPPLEMENTATION THERAPY
     Dosage: 1 IN 1 D
     Route: 048
  10. CHLORTHALIDONE. [Concomitant]
     Active Substance: CHLORTHALIDONE
     Indication: HYPERTENSION
     Dosage: 50 MG, 1 IN 1 D
     Route: 048
  11. NAPROXEN. [Concomitant]
     Active Substance: NAPROXEN
     Indication: INFLAMMATION
     Dosage: AS NEEDED
     Route: 048
  12. BUSCOPAN [Concomitant]
     Active Substance: BUTYLSCOPOLAMINE BROMIDE
     Indication: GALLBLADDER DISORDER
     Dosage: AS NEEDED
     Route: 048
  13. CONTRAVE [Suspect]
     Active Substance: BUPROPION HYDROCHLORIDE\NALTREXONE HYDROCHLORIDE
     Dosage: 16/SEP/2019 (APPROX), STRENGTH: 90/8 MG
     Route: 048
     Dates: start: 201909
  14. VITAMIN D                          /00107901/ [Concomitant]
     Active Substance: ERGOCALCIFEROL
     Indication: SUPPLEMENTATION THERAPY
     Dosage: 1 IN 1 D
     Route: 048
  15. COD-LIVER OIL [Concomitant]
     Active Substance: COD LIVER OIL
     Indication: SUPPLEMENTATION THERAPY
     Dosage: 1 IN 1 D
     Route: 048
  16. MICRO-K PLUS [Concomitant]
     Indication: BLOOD POTASSIUM DECREASED
     Dosage: 8 MEQ,1 IN 1 D
     Route: 048

REACTIONS (19)
  - Musculoskeletal pain [Unknown]
  - Cough [Recovering/Resolving]
  - Malaise [Unknown]
  - Gallbladder disorder [Unknown]
  - Constipation [Recovered/Resolved]
  - Asthma [Unknown]
  - Muscle spasms [Not Recovered/Not Resolved]
  - Condition aggravated [Recovered/Resolved]
  - Diarrhoea [Recovered/Resolved]
  - Headache [Recovered/Resolved]
  - Nausea [Recovered/Resolved]
  - Sleep disorder [Recovered/Resolved]
  - Abnormal dreams [Recovered/Resolved]
  - Tremor [Recovered/Resolved]
  - Meniscus injury [Not Recovered/Not Resolved]
  - Muscle strain [Recovered/Resolved]
  - Back pain [Recovered/Resolved]
  - Hypohidrosis [Recovered/Resolved]
  - Pyrexia [Unknown]

NARRATIVE: CASE EVENT DATE: 2019
